FAERS Safety Report 5104289-5 (Version None)
Quarter: 2006Q3

REPORT INFORMATION
  Report Type: 
  Country: None (occurrence: None)
  Receive Date: 20060914
  Receipt Date: 20060816
  Transmission Date: 20061208
  Serious: Yes (Other)
  Sender: FDA-Public Use
  Company Number: PHEH2006US10511

PATIENT
  Age: 40 Year
  Sex: Female
  Weight: 43.537 kg

DRUGS (4)
  1. DIOVAN [Suspect]
     Indication: HYPERTENSION
     Dosage: 80 MG, QD
     Route: 048
     Dates: start: 20060815, end: 20060817
  2. LEXAPRO [Interacting]
     Indication: ANXIETY
     Dosage: 10 MG, QD
     Route: 048
     Dates: start: 20060814
  3. PRILOSEC [Concomitant]
     Indication: STOMACH DISCOMFORT
     Dosage: UNK, PRN
     Dates: start: 20050801
  4. TAGAMET [Concomitant]
     Indication: STOMACH DISCOMFORT
     Dosage: UNK, PRN
     Dates: start: 20050801

REACTIONS (10)
  - CHEST PAIN [None]
  - DEPRESSED LEVEL OF CONSCIOUSNESS [None]
  - FEAR [None]
  - FEELING ABNORMAL [None]
  - HEADACHE [None]
  - HYPERHIDROSIS [None]
  - HYPOTENSION [None]
  - LOSS OF CONSCIOUSNESS [None]
  - TREMOR [None]
  - VISUAL DISTURBANCE [None]
